FAERS Safety Report 26169315 (Version 1)
Quarter: 2025Q4

REPORT INFORMATION
  Report Type: Spontaneous
  Country: US (occurrence: US)
  Receive Date: 20251217
  Receipt Date: 20251217
  Transmission Date: 20260118
  Serious: No
  Sender: Genetix Biotherapeutics
  Company Number: US-GENETIX BIOTHERAPEUTICS INC.-US-BBB-25-00093

PATIENT
  Age: 24 Year

DRUGS (1)
  1. LYFGENIA [Suspect]
     Active Substance: LOVOTIBEGLOGENE AUTOTEMCEL
     Indication: Sickle cell disease
     Dosage: UNK, UNK
     Route: 065

REACTIONS (1)
  - Feeling abnormal [Unknown]
